FAERS Safety Report 22157565 (Version 1)
Quarter: 2023Q1

REPORT INFORMATION
  Report Type: Spontaneous
  Country: US (occurrence: None)
  Receive Date: 20230330
  Receipt Date: 20230330
  Transmission Date: 20230417
  Serious: Yes (Disabling)
  Sender: FDA-Public Use
  Company Number: None

PATIENT
  Age: 43 Year
  Sex: Female
  Weight: 52.2 kg

DRUGS (1)
  1. CIPROFLOXACIN [Suspect]
     Active Substance: CIPROFLOXACIN
     Indication: Urinary tract infection
     Dosage: OTHER QUANTITY : 10 TABLET(S);?FREQUENCY : TWICE A DAY;?
     Route: 048
     Dates: start: 20220713, end: 20220717

REACTIONS (14)
  - Hypoaesthesia [None]
  - Hypoaesthesia [None]
  - Erythromelalgia [None]
  - Asteatosis [None]
  - Hypohidrosis [None]
  - Dry skin [None]
  - Skin exfoliation [None]
  - Pain of skin [None]
  - Sensory disturbance [None]
  - Burning sensation [None]
  - Neuropathy peripheral [None]
  - Tremor [None]
  - Paraesthesia oral [None]
  - Raynaud^s phenomenon [None]

NARRATIVE: CASE EVENT DATE: 20220809
